FAERS Safety Report 21992331 (Version 1)
Quarter: 2023Q1

REPORT INFORMATION
  Report Type: Report from Study
  Country: US (occurrence: US)
  Receive Date: 20230215
  Receipt Date: 20230215
  Transmission Date: 20230417
  Serious: Yes (Death, Other)
  Sender: FDA-Public Use
  Company Number: US-SUN PHARMACEUTICAL INDUSTRIES LTD-2023R1-378411

PATIENT
  Age: 41 Year
  Sex: Male

DRUGS (2)
  1. AMLODIPINE [Suspect]
     Active Substance: AMLODIPINE BESYLATE
     Indication: Product used for unknown indication
     Dosage: UNK
     Route: 065
  2. COCAINE [Suspect]
     Active Substance: COCAINE
     Indication: Product used for unknown indication
     Dosage: UNK
     Route: 065

REACTIONS (21)
  - Toxicity to various agents [Fatal]
  - Hypotension [Fatal]
  - Tachycardia [Fatal]
  - Depressed level of consciousness [Fatal]
  - Bradypnoea [Fatal]
  - Hyperthermia [Fatal]
  - Electrocardiogram QT prolonged [Fatal]
  - Myocardial ischaemia [Fatal]
  - Pneumonitis aspiration [Fatal]
  - Respiratory depression [Fatal]
  - Anion gap [Fatal]
  - Hepatotoxicity [Fatal]
  - Haemolysis [Fatal]
  - Coagulopathy [Fatal]
  - Thrombocytopenia [Fatal]
  - Leukocytosis [Fatal]
  - Acute kidney injury [Fatal]
  - Rhabdomyolysis [Fatal]
  - Rash [Fatal]
  - Coma [Fatal]
  - Myocardial injury [Fatal]
